FAERS Safety Report 7850190-3 (Version None)
Quarter: 2011Q4

REPORT INFORMATION
  Report Type: 
  Country: None (occurrence: None)
  Receive Date: 20111021
  Receipt Date: 20111013
  Transmission Date: 20120403
  Serious: Yes (Hospitalization)
  Sender: FDA-Public Use
  Company Number: AUR-APL-2011-04849

PATIENT
  Age: 74 Year
  Sex: Male

DRUGS (12)
  1. DEXAMETHASONE [Concomitant]
  2. FUROSEMIDE [Suspect]
     Indication: PRODUCT USED FOR UNKNOWN INDICATION
     Dosage: (20 MG, 1 D), ORAL
     Route: 048
     Dates: start: 20110801
  3. ALLOPURINOL [Concomitant]
  4. DALTEPARIN SODIUM [Suspect]
     Indication: LUNG NEOPLASM MALIGNANT
     Dates: start: 20110704
  5. ASPIRIN [Concomitant]
  6. RANITIDINE [Concomitant]
  7. PERINDOPRIL ERBUMINE [Suspect]
     Indication: PRODUCT USED FOR UNKNOWN INDICATION
     Dosage: (8 MG), ORAL
     Route: 048
     Dates: start: 20080101
  8. SIMVASTATIN [Concomitant]
  9. FLUTICASONE PROPIONATE/SALMETEROL [Concomitant]
  10. DIGOXIN [Concomitant]
  11. BISOPROLOL [Concomitant]
  12. SPIRIVA [Concomitant]

REACTIONS (3)
  - BLOOD SODIUM DECREASED [None]
  - CONFUSIONAL STATE [None]
  - OVERDOSE [None]
